FAERS Safety Report 5712225-3 (Version None)
Quarter: 2008Q2

REPORT INFORMATION
  Report Type: 
  Country: None (occurrence: None)
  Receive Date: 20080422
  Receipt Date: 20080415
  Transmission Date: 20081010
  Serious: Yes (Life-Threatening, Hospitalization, Other)
  Sender: FDA-Public Use
  Company Number: AU-JNJFOC-20070506645

PATIENT
  Sex: Male
  Weight: 85 kg

DRUGS (28)
  1. PREZISTA [Suspect]
     Route: 048
  2. PREZISTA [Suspect]
     Indication: HIV INFECTION
     Route: 048
  3. RITONAVIR [Suspect]
     Indication: HIV INFECTION
     Route: 048
  4. MARAVIROC [Suspect]
     Indication: HIV INFECTION
     Route: 048
  5. RALTEGRAVIR [Concomitant]
     Indication: HIV INFECTION
     Route: 048
  6. LAMIVUDINE [Concomitant]
     Indication: HIV INFECTION
     Route: 048
  7. MIST MORPHINE [Concomitant]
     Indication: NEURALGIA
     Route: 048
  8. CITALOPRAM HYDROBROMIDE [Concomitant]
     Indication: DEPRESSION
     Route: 048
  9. AMOXIL [Concomitant]
     Indication: INFECTION PROPHYLAXIS
     Route: 048
  10. ROXITHROMYCIN [Concomitant]
     Indication: PNEUMONIA
     Route: 048
  11. WARFARIN SODIUM [Concomitant]
     Indication: PROPHYLAXIS
     Route: 048
  12. ESCITALOPRAM OXALATE [Concomitant]
     Route: 048
  13. CORTATE [Concomitant]
     Indication: STEROID THERAPY
     Route: 065
  14. FLORINEF [Concomitant]
     Indication: STEROID THERAPY
     Route: 048
  15. CARVEDILOL [Concomitant]
     Indication: CARDIAC DISORDER
     Route: 048
  16. BACTRIM [Concomitant]
     Indication: ANTIFUNGAL PROPHYLAXIS
     Route: 048
  17. PRAVACHOL [Concomitant]
     Indication: BLOOD CHOLESTEROL
     Route: 048
  18. CALCITRIOL [Concomitant]
     Indication: BONE DISORDER
     Route: 048
  19. HYDROZOLE [Concomitant]
     Indication: ANTIFUNGAL PROPHYLAXIS
     Route: 061
  20. HYDROZOLE [Concomitant]
     Indication: ANTIINFLAMMATORY THERAPY
     Route: 061
  21. ORDINE [Concomitant]
     Indication: ANALGESIA
     Route: 048
  22. ENDONE [Concomitant]
     Indication: ANALGESIA
     Route: 048
  23. DIAZEPAM [Concomitant]
     Indication: SLEEP DISORDER THERAPY
     Route: 065
  24. HYPNODORM [Concomitant]
     Indication: SLEEP DISORDER THERAPY
     Route: 065
  25. FOSAMAX [Concomitant]
     Route: 048
  26. VITAMIN B [Concomitant]
     Route: 048
  27. FLUDROCORTISONE ACETATE [Concomitant]
     Route: 048
  28. CEFTRIAXONE [Concomitant]
     Indication: LOWER RESPIRATORY TRACT INFECTION
     Route: 042

REACTIONS (3)
  - HAEMOPTYSIS [None]
  - PNEUMONIA [None]
  - RESPIRATORY ARREST [None]
